FAERS Safety Report 25589300 (Version 2)
Quarter: 2025Q3

REPORT INFORMATION
  Report Type: Spontaneous
  Country: US (occurrence: US)
  Receive Date: 20250722
  Receipt Date: 20250728
  Transmission Date: 20251021
  Serious: No
  Sender: AMGEN
  Company Number: US-AMGEN-USASP2025143729

PATIENT
  Age: 69 Year
  Sex: Male

DRUGS (10)
  1. OTEZLA [Suspect]
     Active Substance: APREMILAST
     Indication: Psoriatic arthropathy
     Dosage: 30 MILLIGRAM, BID
     Route: 048
     Dates: start: 20250620, end: 20250711
  2. DILTIAZEM [Concomitant]
     Active Substance: DILTIAZEM
  3. HYDROCHLOROTHIAZIDE [Concomitant]
     Active Substance: HYDROCHLOROTHIAZIDE
  4. LOSARTAN [Concomitant]
     Active Substance: LOSARTAN
  5. MAGNESIUM [Concomitant]
     Active Substance: MAGNESIUM
  6. OMEPRAZOLE [Concomitant]
     Active Substance: OMEPRAZOLE
  7. PEPCID [Concomitant]
     Active Substance: FAMOTIDINE
  8. ROSUVASTATIN [Concomitant]
     Active Substance: ROSUVASTATIN
  9. VITAMIN B12 [Concomitant]
     Active Substance: CYANOCOBALAMIN
  10. VITAMIN D3 [Concomitant]
     Active Substance: CHOLECALCIFEROL

REACTIONS (1)
  - Depression [Recovering/Resolving]

NARRATIVE: CASE EVENT DATE: 20250701
